FAERS Safety Report 9129870 (Version 1)
Quarter: 2013Q1

REPORT INFORMATION
  Report Type: Spontaneous
  Country: US (occurrence: US)
  Receive Date: 20130228
  Receipt Date: 20130228
  Transmission Date: 20140127
  Serious: Yes (Other)
  Sender: FDA-Public Use
  Company Number: US-PFIZER INC-2013071221

PATIENT
  Sex: Male

DRUGS (1)
  1. DILANTIN [Suspect]
     Indication: CONVULSION
     Dosage: 300 MG PER DAY (TWO 100MG CAPSULES IN MORNING AND ONE 100MG CAPSULE AT NIGHT)
     Route: 048

REACTIONS (2)
  - Osteochondritis [Unknown]
  - Arthropathy [Unknown]
